FAERS Safety Report 7341199-7 (Version None)
Quarter: 2011Q1

REPORT INFORMATION
  Report Type: 
  Country: None (occurrence: None)
  Receive Date: 20110309
  Receipt Date: 20110224
  Transmission Date: 20110831
  Serious: Yes (Death, Hospitalization)
  Sender: FDA-Public Use
  Company Number: US-ELI_LILLY_AND_COMPANY-US201102007610

PATIENT
  Age: 67 Year
  Sex: Female

DRUGS (3)
  1. EFFIENT [Suspect]
     Dosage: 5 MG, UNKNOWN
  2. ASPIRIN [Concomitant]
  3. HEPARIN [Concomitant]

REACTIONS (4)
  - RENAL ARTERY STENOSIS [None]
  - CARDIAC FAILURE [None]
  - PROCEDURAL COMPLICATION [None]
  - RETROPERITONEAL HAEMORRHAGE [None]
